FAERS Safety Report 14649648 (Version 1)
Quarter: 2018Q1

REPORT INFORMATION
  Report Type: Spontaneous
  Country: IS (occurrence: IS)
  Receive Date: 20180316
  Receipt Date: 20180316
  Transmission Date: 20180509
  Serious: Yes (Death, Other)
  Sender: FDA-Public Use
  Company Number: IS-MYLANLABS-2018M1015915

PATIENT
  Age: 57 Year
  Sex: Male

DRUGS (1)
  1. WARFARIN [Suspect]
     Active Substance: WARFARIN
     Indication: PRODUCT USED FOR UNKNOWN INDICATION
     Dosage: UNK

REACTIONS (4)
  - Intestinal ischaemia [Fatal]
  - Incarcerated hernia [Fatal]
  - Abdominal compartment syndrome [Fatal]
  - Gastrointestinal haemorrhage [Fatal]
